FAERS Safety Report 16160658 (Version 2)
Quarter: 2021Q1

REPORT INFORMATION
  Report Type: Report from Study
  Country: US (occurrence: US)
  Receive Date: 20190405
  Receipt Date: 20210125
  Transmission Date: 20210419
  Serious: No
  Sender: FDA-Public Use
  Company Number: US-SHIRE-US201911151

PATIENT
  Sex: Female

DRUGS (3)
  1. FIRAZYR [Suspect]
     Active Substance: ICATIBANT ACETATE
     Indication: PRODUCT USED FOR UNKNOWN INDICATION
     Dosage: 30MG/ML
     Route: 058
  2. FIRAZYR [Suspect]
     Active Substance: ICATIBANT ACETATE
     Indication: PRODUCT USED FOR UNKNOWN INDICATION
     Dosage: 30MG/ML
     Route: 058
  3. 643 (LANADELUMAB) [Suspect]
     Active Substance: LANADELUMAB
     Indication: PRODUCT USED FOR UNKNOWN INDICATION
     Dosage: 300 MILLIGRAM, Q2WEEKS
     Route: 058
     Dates: start: 20190306

REACTIONS (4)
  - Injection site swelling [Unknown]
  - Contusion [Unknown]
  - Wheezing [Unknown]
  - Injection site bruising [Unknown]
